FAERS Safety Report 25271493 (Version 1)
Quarter: 2025Q2

REPORT INFORMATION
  Report Type: Spontaneous
  Country: US (occurrence: US)
  Receive Date: 20250506
  Receipt Date: 20250506
  Transmission Date: 20250717
  Serious: Yes (Hospitalization)
  Sender: LUPIN
  Company Number: US-LUPIN PHARMACEUTICALS INC.-2025-03575

PATIENT
  Age: 36 Year
  Sex: Male

DRUGS (19)
  1. VORICONAZOLE [Interacting]
     Active Substance: VORICONAZOLE
     Indication: Aspergillus infection
     Route: 065
  2. RIFABUTIN [Interacting]
     Active Substance: RIFABUTIN
     Indication: Bone tuberculosis
     Route: 065
  3. RIFABUTIN [Interacting]
     Active Substance: RIFABUTIN
     Indication: Meningitis tuberculous
     Dosage: 450 MILLIGRAM, QD
     Route: 065
  4. ISAVUCONAZOLE [Interacting]
     Active Substance: ISAVUCONAZOLE
     Indication: Aspergillus infection
     Route: 065
  5. ISONIAZID [Concomitant]
     Active Substance: ISONIAZID
     Indication: Meningitis tuberculous
     Dosage: 1200 MILLIGRAM, QD
  6. ISONIAZID [Concomitant]
     Active Substance: ISONIAZID
     Indication: Bone tuberculosis
  7. PYRIDOXINE [Concomitant]
     Active Substance: PYRIDOXINE
     Indication: Meningitis tuberculous
     Dosage: 50 MILLIGRAM, QD
  8. PYRIDOXINE [Concomitant]
     Active Substance: PYRIDOXINE
     Indication: Bone tuberculosis
  9. ETHAMBUTOL [Concomitant]
     Active Substance: ETHAMBUTOL HYDROCHLORIDE
     Indication: Meningitis tuberculous
     Dosage: 2000 MILLIGRAM, QD
     Route: 065
  10. ETHAMBUTOL [Concomitant]
     Active Substance: ETHAMBUTOL HYDROCHLORIDE
     Indication: Bone tuberculosis
  11. PYRAZINAMIDE [Concomitant]
     Active Substance: PYRAZINAMIDE
     Indication: Meningitis tuberculous
     Dosage: 2 GRAM, QD
  12. PYRAZINAMIDE [Concomitant]
     Active Substance: PYRAZINAMIDE
     Indication: Bone tuberculosis
  13. LEVOFLOXACIN [Concomitant]
     Active Substance: LEVOFLOXACIN
     Indication: Meningitis tuberculous
     Dosage: 750 MILLIGRAM, QD
  14. LEVOFLOXACIN [Concomitant]
     Active Substance: LEVOFLOXACIN
     Indication: Bone tuberculosis
  15. LINEZOLID [Concomitant]
     Active Substance: LINEZOLID
     Indication: Meningitis tuberculous
     Dosage: 600 MILLIGRAM, BID
  16. LINEZOLID [Concomitant]
     Active Substance: LINEZOLID
     Indication: Bone tuberculosis
  17. DEXAMETHASONE [Concomitant]
     Active Substance: DEXAMETHASONE
     Indication: Meningitis tuberculous
     Dosage: 6 MILLIGRAM, QD
     Route: 065
  18. DEXAMETHASONE [Concomitant]
     Active Substance: DEXAMETHASONE
     Indication: Bone tuberculosis
  19. DEXAMETHASONE [Concomitant]
     Active Substance: DEXAMETHASONE
     Indication: Steroid therapy

REACTIONS (2)
  - Drug interaction [Unknown]
  - Drug level abnormal [Unknown]
